FAERS Safety Report 8705522 (Version 2)
Quarter: 2013Q4

REPORT INFORMATION
  Report Type: Spontaneous
  Country: JP (occurrence: JP)
  Receive Date: 20120803
  Receipt Date: 20131106
  Transmission Date: 20140711
  Serious: Yes (Other)
  Sender: FDA-Public Use
  Company Number: JP-009507513-1207JPN012667

PATIENT
  Sex: 0

DRUGS (1)
  1. TEMODAL [Suspect]
     Indication: MALIGNANT GLIOMA
     Dosage: DOSAGE UNKNOWN DURING A DAY
     Route: 048
     Dates: start: 201206, end: 201207

REACTIONS (2)
  - Renal disorder [Not Recovered/Not Resolved]
  - Liver disorder [Not Recovered/Not Resolved]
